FAERS Safety Report 6525126-8 (Version None)
Quarter: 2010Q1

REPORT INFORMATION
  Report Type: 
  Country: None (occurrence: None)
  Receive Date: 20100104
  Receipt Date: 20091203
  Transmission Date: 20100710
  Serious: No
  Sender: FDA-Public Use
  Company Number: US-BAYER-200941830NA

PATIENT
  Age: 16 Year
  Sex: Female

DRUGS (1)
  1. YASMIN [Suspect]
     Indication: VAGINAL HAEMORRHAGE

REACTIONS (3)
  - ABDOMINAL PAIN [None]
  - DYSSTASIA [None]
  - MOBILITY DECREASED [None]
